FAERS Safety Report 22288961 (Version 1)
Quarter: 2023Q2

REPORT INFORMATION
  Report Type: Other
  Country: US (occurrence: US)
  Receive Date: 20230505
  Receipt Date: 20230505
  Transmission Date: 20230722
  Serious: No
  Sender: FDA-Public Use
  Company Number: US-Covis Pharma GmbH-2023COV01074

PATIENT
  Age: 32 Year
  Sex: Female

DRUGS (1)
  1. MAKENA [Suspect]
     Active Substance: HYDROXYPROGESTERONE CAPROATE
     Indication: Product used for unknown indication
     Route: 058
     Dates: start: 20230224, end: 20230421

REACTIONS (2)
  - Injection site rash [Recovered/Resolved with Sequelae]
  - Product administration error [Unknown]

NARRATIVE: CASE EVENT DATE: 20230101
